FAERS Safety Report 15517269 (Version 1)
Quarter: 2018Q4

REPORT INFORMATION
  Report Type: Report from Study
  Country: JP (occurrence: JP)
  Receive Date: 20181017
  Receipt Date: 20181017
  Transmission Date: 20190205
  Serious: Yes (Other)
  Sender: FDA-Public Use
  Company Number: JP-PFIZER INC-2018420856

PATIENT
  Sex: Male

DRUGS (4)
  1. LEUCOVORIN. [Suspect]
     Active Substance: LEUCOVORIN
     Indication: LARYNGEAL SQUAMOUS CELL CARCINOMA
     Dosage: 20 MG/M2, CYCLIC (RECEIVED ON DAYS 1-5 OF EVERY 4 WEEKS CYCLE)
     Route: 065
  2. CISPLATIN. [Suspect]
     Active Substance: CISPLATIN
     Indication: LARYNGEAL SQUAMOUS CELL CARCINOMA
     Dosage: 60 MG/M2, CYCLIC (RECEIVED ON DAY 4 OF THE CYCLE)
     Route: 065
  3. METHOTREXATE SODIUM. [Suspect]
     Active Substance: METHOTREXATE SODIUM
     Indication: LARYNGEAL SQUAMOUS CELL CARCINOMA
     Dosage: 30 MG/M2, CYCLIC (RECEIVED ON DAY 1 OF THE CYCLE)
     Route: 065
  4. 5-FLUOROURACIL [Suspect]
     Active Substance: FLUOROURACIL
     Indication: LARYNGEAL SQUAMOUS CELL CARCINOMA
     Dosage: 600 MG/M2, CYCLIC (RECEIVED OVER 24 HOURS FOR 5 DAYS, ON DAYS 1-5 OF THE CYCLE)
     Route: 065

REACTIONS (2)
  - Dysphagia [Unknown]
  - Mucosal inflammation [Unknown]
